FAERS Safety Report 24183997 (Version 1)
Quarter: 2024Q3

REPORT INFORMATION
  Report Type: Spontaneous
  Country: US (occurrence: None)
  Receive Date: 20240806
  Receipt Date: 20240806
  Transmission Date: 20241017
  Serious: Yes (Other)
  Sender: Public
  Company Number: None

PATIENT
  Age: 35 Year
  Sex: Female

DRUGS (2)
  1. CEPHALEXIN [Suspect]
     Active Substance: CEPHALEXIN
     Indication: Mastitis
     Dosage: FREQUENCY : 4 TIMES A DAY;?
     Route: 048
     Dates: start: 20240803
  2. CITALOPRAM [Concomitant]
     Active Substance: CITALOPRAM\CITALOPRAM HYDROBROMIDE

REACTIONS (3)
  - Maternal exposure during breast feeding [None]
  - Diarrhoea [None]
  - Infantile diarrhoea [None]
